FAERS Safety Report 9298074 (Version 1)
Quarter: 2013Q2

REPORT INFORMATION
  Report Type: Spontaneous
  Country: US (occurrence: US)
  Receive Date: 20130520
  Receipt Date: 20130520
  Transmission Date: 20140414
  Serious: Yes (Other)
  Sender: FDA-Public Use
  Company Number: US-TEVA-405783USA

PATIENT
  Sex: Male

DRUGS (12)
  1. PROAIR HFA [Suspect]
     Indication: ASTHMA
  2. PROAIR HFA [Suspect]
     Indication: CHRONIC OBSTRUCTIVE PULMONARY DISEASE
  3. PROAIR HFA [Suspect]
     Indication: EMPHYSEMA
  4. DALIRESP [Concomitant]
     Indication: ASTHMA
  5. DALIRESP [Concomitant]
     Indication: CHRONIC OBSTRUCTIVE PULMONARY DISEASE
  6. DALIRESP [Concomitant]
     Indication: EMPHYSEMA
  7. DUONEB [Concomitant]
     Indication: ASTHMA
     Dosage: USES NEBULIZER 4 TIMES A DAY, IF IT GETS WORST THEN HE WILL USE IT 1 OR 2 MORE TIMES
  8. DUONEB [Concomitant]
     Indication: CHRONIC OBSTRUCTIVE PULMONARY DISEASE
  9. DUONEB [Concomitant]
     Indication: EMPHYSEMA
  10. PREDNISONE [Concomitant]
     Indication: ASTHMA
  11. PREDNISONE [Concomitant]
     Indication: CHRONIC OBSTRUCTIVE PULMONARY DISEASE
  12. PREDNISONE [Concomitant]
     Indication: EMPHYSEMA

REACTIONS (1)
  - Macular degeneration [Not Recovered/Not Resolved]
